FAERS Safety Report 6299884-4 (Version None)
Quarter: 2009Q3

REPORT INFORMATION
  Report Type: 
  Country: None (occurrence: None)
  Receive Date: 20090806
  Receipt Date: 20090727
  Transmission Date: 20100115
  Serious: Yes (Hospitalization, Other)
  Sender: FDA-Public Use
  Company Number: PHHY2009MX31201

PATIENT
  Sex: Female

DRUGS (3)
  1. ACLASTA [Suspect]
     Indication: OSTEOPOROSIS
     Dosage: 1 INJECTION PER YEAR
     Dates: start: 20080401
  2. RIVOTRIL [Concomitant]
     Indication: DEPRESSION
  3. SERTRALINE [Concomitant]
     Indication: DEPRESSION

REACTIONS (2)
  - GASTROENTERITIS [None]
  - IRRITABLE BOWEL SYNDROME [None]
